FAERS Safety Report 15842221 (Version 2)
Quarter: 2019Q1

REPORT INFORMATION
  Report Type: Spontaneous
  Country: US (occurrence: US)
  Receive Date: 20190118
  Receipt Date: 20190128
  Transmission Date: 20190417
  Serious: No
  Sender: FDA-Public Use
  Company Number: US-ASTRAZENECA-2019SE07085

PATIENT
  Age: 5 Month
  Sex: Female
  Weight: 3.5 kg

DRUGS (5)
  1. ZANTAC [Concomitant]
     Active Substance: RANITIDINE HYDROCHLORIDE
     Indication: GASTROOESOPHAGEAL REFLUX DISEASE
  2. SYNAGIS [Suspect]
     Active Substance: PALIVIZUMAB
     Indication: JOUBERT SYNDROME
     Dosage: MONTHLY
     Route: 030
     Dates: start: 20181119
  3. ALBUTEROL. [Concomitant]
     Active Substance: ALBUTEROL
     Indication: BRONCHIAL HYPERREACTIVITY
     Dosage: AS REQUIRED
     Route: 055
  4. SYNAGIS [Suspect]
     Active Substance: PALIVIZUMAB
     Indication: INFECTION PROPHYLAXIS
     Dosage: MONTHLY
     Route: 030
     Dates: start: 20181119
  5. ALBUTEROL. [Concomitant]
     Active Substance: ALBUTEROL
     Indication: WHEEZING
     Dosage: AS REQUIRED
     Route: 055

REACTIONS (4)
  - Abdominal distension [Recovered/Resolved]
  - Complication associated with device [Recovered/Resolved]
  - Vomiting [Recovered/Resolved]
  - Abdominal discomfort [Recovered/Resolved]

NARRATIVE: CASE EVENT DATE: 201812
